FAERS Safety Report 19667202 (Version 1)
Quarter: 2021Q3

REPORT INFORMATION
  Report Type: Spontaneous
  Country: US (occurrence: US)
  Receive Date: 20210806
  Receipt Date: 20210806
  Transmission Date: 20211014
  Serious: Yes (Death, Other)
  Sender: FDA-Public Use
  Company Number: US-SNT-000172

PATIENT
  Age: 19 Year
  Sex: Female

DRUGS (2)
  1. OXCARBAZEPINE. [Suspect]
     Active Substance: OXCARBAZEPINE
     Indication: PRODUCT USED FOR UNKNOWN INDICATION
     Route: 048
  2. BUPROPION. [Suspect]
     Active Substance: BUPROPION
     Indication: PRODUCT USED FOR UNKNOWN INDICATION
     Route: 048

REACTIONS (7)
  - Overdose [Unknown]
  - Cardiac arrest [Fatal]
  - Seizure [Recovered/Resolved]
  - Cardiogenic shock [Unknown]
  - Cardiopulmonary failure [Fatal]
  - Sinus tachycardia [Recovered/Resolved]
  - Unresponsive to stimuli [Unknown]
